FAERS Safety Report 25432712 (Version 1)
Quarter: 2025Q2

REPORT INFORMATION
  Report Type: Spontaneous
  Country: ES (occurrence: ES)
  Receive Date: 20250613
  Receipt Date: 20250613
  Transmission Date: 20250716
  Serious: Yes (Other)
  Sender: AMGEN
  Company Number: None

PATIENT
  Age: 59 Year
  Sex: Female

DRUGS (1)
  1. ADALIMUMAB [Suspect]
     Active Substance: ADALIMUMAB
     Indication: Rheumatoid arthritis
     Dosage: 40 MILLIGRAM, Q2WK (40 MG / 2 WEEKS)
     Route: 058
     Dates: start: 20240424, end: 20241212

REACTIONS (2)
  - Pustular psoriasis [Not Recovered/Not Resolved]
  - Paradoxical drug reaction [Not Recovered/Not Resolved]

NARRATIVE: CASE EVENT DATE: 20241211
